FAERS Safety Report 10049164 (Version 2)
Quarter: 2014Q2

REPORT INFORMATION
  Report Type: Spontaneous
  Country: BE (occurrence: BE)
  Receive Date: 20140401
  Receipt Date: 20140401
  Transmission Date: 20141212
  Serious: Yes (Hospitalization, Other)
  Sender: FDA-Public Use
  Company Number: BE-PFIZER INC-2014086205

PATIENT
  Age: 48 Year
  Sex: Female

DRUGS (1)
  1. SULFASALAZINE [Suspect]
     Indication: COLITIS ULCERATIVE
     Dosage: 3 G, DAILY

REACTIONS (3)
  - Alveolitis allergic [Recovering/Resolving]
  - Alveolitis [Recovering/Resolving]
  - Pulmonary granuloma [Recovering/Resolving]
